FAERS Safety Report 9759353 (Version 1)
Quarter: 2013Q4

REPORT INFORMATION
  Report Type: Spontaneous
  Country: US (occurrence: None)
  Receive Date: 20131216
  Receipt Date: 20131216
  Transmission Date: 20140711
  Serious: Yes (Hospitalization, Other)
  Sender: FDA-Public Use
  Company Number: 163-21880-12041469(0)

PATIENT
  Age: 81 Year
  Sex: Male

DRUGS (1)
  1. REVLIMID (LENALIDOMIDE) (25 MILLIGRAM, CAPSULES) [Suspect]
     Indication: PLASMA CELL MYELOMA
     Dosage: 25 MG, DAILY X21 DAYS, PO? ? ?

REACTIONS (5)
  - Visual field defect [None]
  - Rectal haemorrhage [None]
  - Neuralgia [None]
  - Pruritus [None]
  - Sleep disorder [None]
